FAERS Safety Report 15934401 (Version 4)
Quarter: 2019Q4

REPORT INFORMATION
  Report Type: Spontaneous
  Country: US (occurrence: US)
  Receive Date: 20190207
  Receipt Date: 20191017
  Transmission Date: 20200122
  Serious: Yes (Other)
  Sender: FDA-Public Use
  Company Number: US-ASTRAZENECA-2018SF21530

PATIENT
  Age: 26183 Day
  Sex: Female

DRUGS (19)
  1. NEXIUM [Suspect]
     Active Substance: ESOMEPRAZOLE MAGNESIUM
     Indication: GASTROOESOPHAGEAL REFLUX DISEASE
     Route: 048
     Dates: start: 20070816, end: 20120329
  2. LOPERAMIDE [Concomitant]
     Active Substance: LOPERAMIDE
  3. PROMETHAZINE [Concomitant]
     Active Substance: PROMETHAZINE HYDROCHLORIDE
     Dosage: 25.0MG UNKNOWN
     Route: 065
  4. ASPIRIN. [Concomitant]
     Active Substance: ASPIRIN
     Dosage: 10.0MG UNKNOWN
     Route: 048
  5. CARISOPRODOL. [Concomitant]
     Active Substance: CARISOPRODOL
  6. VYTORIN [Concomitant]
     Active Substance: EZETIMIBE\SIMVASTATIN
  7. NEXIUM [Suspect]
     Active Substance: ESOMEPRAZOLE MAGNESIUM
     Indication: GASTROOESOPHAGEAL REFLUX DISEASE
     Dosage: 40.0MG UNKNOWN
     Route: 048
     Dates: start: 20070816
  8. NEXIUM 24HR [Suspect]
     Active Substance: ESOMEPRAZOLE MAGNESIUM
     Indication: GASTROOESOPHAGEAL REFLUX DISEASE
     Route: 048
  9. NEXIUM [Suspect]
     Active Substance: ESOMEPRAZOLE MAGNESIUM
     Indication: GASTROOESOPHAGEAL REFLUX DISEASE
     Dosage: UNKNOWN
     Route: 048
     Dates: start: 1995, end: 2002
  10. PRILOSEC OTC [Suspect]
     Active Substance: OMEPRAZOLE MAGNESIUM
     Indication: GASTROOESOPHAGEAL REFLUX DISEASE
     Route: 048
  11. PREVACID 24 HR [Suspect]
     Active Substance: LANSOPRAZOLE
     Route: 065
  12. ACETAMINOPHEN. [Concomitant]
     Active Substance: ACETAMINOPHEN
     Dosage: 325.0MG UNKNOWN
     Route: 065
     Dates: start: 20170412
  13. LEVAQUIN [Concomitant]
     Active Substance: LEVOFLOXACIN
  14. LIPITOR [Concomitant]
     Active Substance: ATORVASTATIN CALCIUM
  15. ZANTAC 150 (RANITIDINE HYDROCHLORIDE) [Concomitant]
     Active Substance: RANITIDINE HYDROCHLORIDE
  16. OMEPRAZOLE. [Suspect]
     Active Substance: OMEPRAZOLE
     Indication: GASTROOESOPHAGEAL REFLUX DISEASE
     Route: 065
     Dates: start: 2002
  17. ALPRAZOLAM. [Concomitant]
     Active Substance: ALPRAZOLAM
     Dosage: 0.5MG UNKNOWN
     Route: 048
     Dates: start: 20070413
  18. TUMS [Concomitant]
     Active Substance: CALCIUM CARBONATE
     Dosage: 750.0MG UNKNOWN
     Route: 065
  19. CIMETIDINE [Concomitant]
     Active Substance: CIMETIDINE

REACTIONS (5)
  - Nephrogenic anaemia [Unknown]
  - Chronic kidney disease [Unknown]
  - Hyperparathyroidism secondary [Unknown]
  - End stage renal disease [Unknown]
  - Renal failure [Not Recovered/Not Resolved]

NARRATIVE: CASE EVENT DATE: 20170411
